FAERS Safety Report 19932688 (Version 1)
Quarter: 2021Q4

REPORT INFORMATION
  Report Type: Spontaneous
  Country: US (occurrence: US)
  Receive Date: 20211007
  Receipt Date: 20211007
  Transmission Date: 20220303
  Serious: Yes (Hospitalization)
  Sender: FDA-Public Use
  Company Number: None

PATIENT
  Sex: Male

DRUGS (9)
  1. VIGABATRIN [Suspect]
     Active Substance: VIGABATRIN
     Indication: Epilepsy
     Dosage: ?          OTHER ROUTE:G-TUBE
     Dates: start: 20201223
  2. CLARITIN [Concomitant]
     Active Substance: LORATADINE
  3. CLONAZEPAM [Concomitant]
     Active Substance: CLONAZEPAM
  4. Flintstones [Concomitant]
  5. Flonase Algy [Concomitant]
  6. GABAPENTIN [Concomitant]
     Active Substance: GABAPENTIN
  7. PEPCID AC [Concomitant]
     Active Substance: FAMOTIDINE
  8. TOPIRAMATE [Concomitant]
     Active Substance: TOPIRAMATE
  9. Zyrtec Chld [Concomitant]

REACTIONS (1)
  - COVID-19 pneumonia [None]
